FAERS Safety Report 8216040-0 (Version None)
Quarter: 2012Q1

REPORT INFORMATION
  Report Type: 
  Country: None (occurrence: None)
  Receive Date: 20120316
  Receipt Date: 20120305
  Transmission Date: 20120608
  Serious: No
  Sender: FDA-Public Use
  Company Number: US-B.I. PHARMACEUTICALS,INC./RIDGEFIELD-2012-BP-04201BP

PATIENT
  Age: 54 Year
  Sex: Female

DRUGS (6)
  1. PREDNISONE [Suspect]
     Dosage: 10 MG
  2. HYZAAR [Concomitant]
     Dates: end: 20120305
  3. ASPIRIN [Concomitant]
     Dates: end: 20120305
  4. SYMBICORT [Concomitant]
     Dates: end: 20120305
  5. SPIRIVA [Suspect]
     Indication: CHRONIC OBSTRUCTIVE PULMONARY DISEASE
     Dosage: 18 MCG
     Route: 055
     Dates: end: 20120305
  6. PREDNISONE [Suspect]
     Dosage: 5 MG
     Dates: end: 20120305

REACTIONS (2)
  - SWOLLEN TONGUE [None]
  - HYPOAESTHESIA ORAL [None]
